FAERS Safety Report 8957451 (Version 2)
Quarter: 2013Q1

REPORT INFORMATION
  Report Type: Spontaneous
  Country: BR (occurrence: BR)
  Receive Date: 20121211
  Receipt Date: 20130121
  Transmission Date: 20140127
  Serious: Yes (Other)
  Sender: FDA-Public Use
  Company Number: PHHY2012BR113485

PATIENT
  Age: 55 Year
  Sex: Female

DRUGS (7)
  1. FORASEQ [Suspect]
     Indication: ASTHMA
     Dosage: 2 DF,(IN MORNING AND AT NIGHT)
  2. NEO FOLICO [Concomitant]
     Indication: PSORIASIS
     Dosage: 1 DF,(THURSDAY TO MONDAY)
     Route: 048
  3. METHOTREXATE [Concomitant]
     Indication: PSORIASIS
     Dosage: 2 DF, (ON TUESDAY AND ON WEDNESDAY)
     Route: 048
  4. BEROTEC [Concomitant]
     Indication: ASTHMA
  5. DIGOXIN [Concomitant]
     Indication: HYPERTENSION
     Route: 048
  6. CAPTOPRIL [Concomitant]
     Indication: HYPERTENSION
     Dosage: 1 DF, (DAILY)
     Route: 048
     Dates: start: 2012
  7. AMINOPHYLLINE [Concomitant]
     Indication: ASTHMA
     Dosage: 100 MG,
     Dates: start: 1996

REACTIONS (5)
  - Fall [Recovering/Resolving]
  - Hand fracture [Recovering/Resolving]
  - Pain in extremity [Recovering/Resolving]
  - Wrist fracture [Recovering/Resolving]
  - Arthralgia [Recovering/Resolving]
